FAERS Safety Report 7701044-4 (Version None)
Quarter: 2011Q3

REPORT INFORMATION
  Report Type: 
  Country: None (occurrence: None)
  Receive Date: 20110817
  Receipt Date: 20110809
  Transmission Date: 20111222
  Serious: Yes (Death)
  Sender: FDA-Public Use
  Company Number: JPI-P-000993

PATIENT
  Age: 61 Year
  Sex: Female

DRUGS (8)
  1. XYREM [Suspect]
     Indication: PRODUCT USED FOR UNKNOWN INDICATION
     Dosage: ORAL
     Route: 048
  2. ADVAIR DISKUS 100/50 [Concomitant]
  3. CLONAZEPAM [Concomitant]
  4. ALBUTEROL SULFATE AUTOHALER [Concomitant]
  5. SPIRIVA [Concomitant]
  6. NORVASC [Concomitant]
  7. PREVACID [Concomitant]
  8. ZOCOR [Concomitant]

REACTIONS (3)
  - CARDIAC ARREST [None]
  - CONDITION AGGRAVATED [None]
  - CHRONIC OBSTRUCTIVE PULMONARY DISEASE [None]
